FAERS Safety Report 7150963-9 (Version None)
Quarter: 2010Q4

REPORT INFORMATION
  Report Type: 
  Country: None (occurrence: None)
  Receive Date: 20101210
  Receipt Date: 20101201
  Transmission Date: 20110411
  Serious: Yes (Hospitalization, Other)
  Sender: FDA-Public Use
  Company Number: A0894663A

PATIENT
  Age: 59 Year
  Sex: Female

DRUGS (4)
  1. PROMACTA [Suspect]
     Indication: IDIOPATHIC THROMBOCYTOPENIC PURPURA
     Dosage: 50MG PER DAY
     Dates: start: 20100622, end: 20101007
  2. CORTICOSTEROIDS [Concomitant]
  3. COUMADIN [Concomitant]
  4. METOCLOPRAMIDE [Concomitant]

REACTIONS (17)
  - BLOOD ALKALINE PHOSPHATASE INCREASED [None]
  - BLOOD THYROID STIMULATING HORMONE INCREASED [None]
  - CHEST X-RAY ABNORMAL [None]
  - COMPRESSION FRACTURE [None]
  - CONSTIPATION [None]
  - DEEP VEIN THROMBOSIS [None]
  - DYSPNOEA [None]
  - EXTRAPYRAMIDAL DISORDER [None]
  - FUNGAL INFECTION [None]
  - HEPATIC ENZYME INCREASED [None]
  - HYPOXIA [None]
  - LEUKOCYTOSIS [None]
  - LIVER DISORDER [None]
  - NAUSEA [None]
  - NEUTROPHILIA [None]
  - OEDEMA PERIPHERAL [None]
  - PLATELET COUNT DECREASED [None]
